FAERS Safety Report 6947385-X (Version None)
Quarter: 2010Q3

REPORT INFORMATION
  Report Type: 
  Country: None (occurrence: None)
  Receive Date: 20100827
  Receipt Date: 20090910
  Transmission Date: 20110219
  Serious: No
  Sender: FDA-Public Use
  Company Number: US-ABBOTT-09P-163-0597212-00

PATIENT
  Sex: Male

DRUGS (7)
  1. NIASPAN [Suspect]
     Indication: BLOOD CHOLESTEROL INCREASED
     Route: 048
     Dates: start: 20090812, end: 20090906
  2. LISINOPRIL [Concomitant]
     Indication: HYPERTENSION
     Route: 048
  3. FLOMAX [Concomitant]
     Indication: PRODUCT USED FOR UNKNOWN INDICATION
     Route: 048
  4. XANAX [Concomitant]
     Indication: PRODUCT USED FOR UNKNOWN INDICATION
     Dosage: 1MG BID PRN
     Route: 048
  5. TRAMADOL HCL [Concomitant]
     Indication: PROSTATIC PAIN
     Route: 048
  6. TRAMADOL HCL [Concomitant]
     Indication: PROSTATE CANCER
  7. SIMVASTATIN [Concomitant]
     Indication: BLOOD CHOLESTEROL INCREASED
     Route: 048

REACTIONS (5)
  - ABDOMINAL DISTENSION [None]
  - ABDOMINAL PAIN [None]
  - BLOOD GLUCOSE INCREASED [None]
  - FLATULENCE [None]
  - INCORRECT DRUG ADMINISTRATION DURATION [None]
